FAERS Safety Report 20390358 (Version 1)
Quarter: 2022Q1

REPORT INFORMATION
  Report Type: Spontaneous
  Country: GB (occurrence: GB)
  Receive Date: 20220128
  Receipt Date: 20220128
  Transmission Date: 20220423
  Serious: Yes (Congenital Anomaly)
  Sender: FDA-Public Use
  Company Number: None

PATIENT

DRUGS (4)
  1. ZOFRAN [Suspect]
     Active Substance: ONDANSETRON HYDROCHLORIDE
     Indication: Foetal exposure during pregnancy
     Dosage: MATERNAL EXPOSURE
     Route: 064
     Dates: start: 20021007, end: 200211
  2. MAXOLON [Concomitant]
     Active Substance: METOCLOPRAMIDE HYDROCHLORIDE
     Indication: Foetal exposure during pregnancy
     Dosage: MATERNAL EXPOSURE
     Route: 064
  3. PROCHLORPERAZINE MALEATE [Concomitant]
     Active Substance: PROCHLORPERAZINE MALEATE
     Indication: Foetal exposure during pregnancy
     Dosage: MATERNAL EXPOSURE: 3 MG
     Route: 064
     Dates: start: 20021002, end: 200210
  4. PROMETHAZINE TEOCLATE [Concomitant]
     Active Substance: PROMETHAZINE TEOCLATE
     Indication: Foetal exposure during pregnancy
     Dosage: MATERNAL EXPOSURE: 25 MG, BID
     Route: 064
     Dates: start: 20020912, end: 200209

REACTIONS (6)
  - Congenital hydrocephalus [Unknown]
  - Pterygium [Unknown]
  - Congenital knee deformity [Unknown]
  - Micrognathia [Unknown]
  - Foetal hypokinesia [Unknown]
  - Foetal exposure during pregnancy [Unknown]
